FAERS Safety Report 19112536 (Version 1)
Quarter: 2021Q2

REPORT INFORMATION
  Report Type: Spontaneous
  Country: CN (occurrence: CN)
  Receive Date: 20210408
  Receipt Date: 20210408
  Transmission Date: 20210717
  Serious: Yes (Hospitalization, Other)
  Sender: FDA-Public Use
  Company Number: CN-CELGENEUS-CHN-20210307529

PATIENT
  Age: 30 Year
  Sex: Female
  Weight: 52 kg

DRUGS (6)
  1. SODIUM CHLORIDE. [Concomitant]
     Active Substance: SODIUM CHLORIDE
     Indication: BREAST CANCER
     Dosage: 80 MILLIGRAM/MILLILITERS
     Route: 041
     Dates: start: 20210223, end: 20210223
  2. CYCLOPHOSPHAMIDE. [Concomitant]
     Active Substance: CYCLOPHOSPHAMIDE
     Indication: BREAST CANCER
     Dosage: .9 GRAM
     Route: 041
     Dates: start: 20210223, end: 20210223
  3. ABRAXANE [Suspect]
     Active Substance: PACLITAXEL
     Indication: BREAST CANCER
     Dosage: 400 MILLIGRAM/SQ. METER
     Route: 041
     Dates: start: 20210223, end: 20210223
  4. SODIUM CHLORIDE. [Concomitant]
     Active Substance: SODIUM CHLORIDE
     Dosage: 100 MILLIGRAM/MILLILITERS
     Route: 041
     Dates: start: 20210223, end: 20210223
  5. ABRAXANE [Suspect]
     Active Substance: PACLITAXEL
     Dosage: 260 MILLIGRAM/SQ. METER
     Route: 041
     Dates: start: 202102
  6. CYCLOPHOSPHAMIDE. [Concomitant]
     Active Substance: CYCLOPHOSPHAMIDE
     Dosage: 600 MILLIGRAM/SQ. METER
     Route: 041
     Dates: start: 202102

REACTIONS (5)
  - Myelosuppression [Recovering/Resolving]
  - Injection site urticaria [Recovering/Resolving]
  - Arthralgia [Recovering/Resolving]
  - Drug eruption [Recovered/Resolved]
  - Pyrexia [Recovered/Resolved]

NARRATIVE: CASE EVENT DATE: 2021
